FAERS Safety Report 11333243 (Version 1)
Quarter: 2015Q3

REPORT INFORMATION
  Report Type: Spontaneous
  Country: US (occurrence: US)
  Receive Date: 20150803
  Receipt Date: 20150803
  Transmission Date: 20151125
  Serious: No
  Sender: FDA-Public Use
  Company Number: US-ELI_LILLY_AND_COMPANY-US200711006738

PATIENT
  Sex: Female

DRUGS (2)
  1. ZYPREXA [Suspect]
     Active Substance: OLANZAPINE
     Dosage: 40 MG, UNK
     Route: 048
     Dates: start: 20071001, end: 20071118
  2. CLONAPIN [Concomitant]
     Active Substance: CLONAZEPAM

REACTIONS (4)
  - Anxiety [Unknown]
  - Restlessness [Unknown]
  - Mania [Unknown]
  - Prescribed overdose [Recovered/Resolved]

NARRATIVE: CASE EVENT DATE: 2007
